FAERS Safety Report 8302328-1 (Version None)
Quarter: 2012Q2

REPORT INFORMATION
  Report Type: 
  Country: None (occurrence: None)
  Receive Date: 20120420
  Receipt Date: 20120412
  Transmission Date: 20120825
  Serious: Yes (Other)
  Sender: FDA-Public Use
  Company Number: PHHY2012SE032296

PATIENT
  Sex: Female

DRUGS (4)
  1. MODAFANIL [Concomitant]
  2. GILENYA [Suspect]
     Dosage: 0.5 MG, QD
     Route: 048
     Dates: start: 20111011, end: 20111210
  3. SERTRALINE HYDROCHLORIDE [Concomitant]
  4. TYSABRI [Suspect]

REACTIONS (7)
  - DYSENTERY [None]
  - PROGRESSIVE MULTIFOCAL LEUKOENCEPHALOPATHY [None]
  - CENTRAL NERVOUS SYSTEM LESION [None]
  - IMMUNE RECONSTITUTION SYNDROME [None]
  - FACIAL PARESIS [None]
  - DYSARTHRIA [None]
  - MULTIPLE SCLEROSIS RELAPSE [None]
